FAERS Safety Report 9044101 (Version 2)
Quarter: 2013Q1

REPORT INFORMATION
  Report Type: Report from Study
  Country: US (occurrence: US)
  Receive Date: 20130130
  Receipt Date: 20130206
  Transmission Date: 20140127
  Serious: Yes (Life-Threatening, Hospitalization, Other)
  Sender: FDA-Public Use
  Company Number: US-GENZYME-MOZO-1000808

PATIENT
  Age: 8 Year
  Sex: Male
  Weight: 25.5 kg

DRUGS (9)
  1. MEROPENEM [Concomitant]
     Indication: ANTIBIOTIC THERAPY
     Dosage: 500 MG, UNK
     Route: 042
     Dates: start: 20130114
  2. MICAFUNGIN [Concomitant]
     Indication: ANTI-INFECTIVE THERAPY
     Dosage: 75 MG, UNK
     Route: 042
     Dates: start: 20121202
  3. RITUXIMAB [Concomitant]
     Indication: PRODUCT USED FOR UNKNOWN INDICATION
     Dosage: 360 MG, UNK
     Route: 042
     Dates: start: 20130115, end: 20130115
  4. VORICONAZOLE [Concomitant]
     Indication: ANTI-INFECTIVE THERAPY
     Dosage: 200 MG, UNK
     Route: 048
     Dates: start: 20130117
  5. MOZOBIL [Suspect]
     Indication: HAEMATOPOIETIC STEM CELL MOBILISATION
     Dosage: 0.24 MG/KG, QD
     Route: 042
     Dates: start: 20121208
  6. MOZOBIL [Suspect]
     Indication: ACUTE MYELOID LEUKAEMIA
  7. CIDOFOVIR [Concomitant]
     Indication: ANTIVIRAL TREATMENT
     Dosage: 25 MG, UNK
     Route: 042
     Dates: start: 20130107, end: 20130116
  8. CIDOFOVIR [Concomitant]
     Dosage: 125 MG, UNK
     Route: 042
     Dates: start: 20130117
  9. IMMUNOGLOBULIN [Concomitant]
     Indication: PRODUCT USED FOR UNKNOWN INDICATION
     Dosage: 5 G, UNK
     Route: 042
     Dates: start: 20121217

REACTIONS (4)
  - Cardiac failure [Not Recovered/Not Resolved]
  - Pulmonary oedema [Not Recovered/Not Resolved]
  - Ventricular tachycardia [Recovered/Resolved]
  - Pleural effusion [Not Recovered/Not Resolved]
